FAERS Safety Report 5650791-7 (Version None)
Quarter: 2008Q1

REPORT INFORMATION
  Report Type: 
  Country: None (occurrence: None)
  Receive Date: 20080304
  Receipt Date: 20080304
  Transmission Date: 20080703
  Serious: Yes (Hospitalization, Other)
  Sender: FDA-Public Use
  Company Number: None

PATIENT
  Age: 46 Year
  Sex: Female
  Weight: 90.7194 kg

DRUGS (2)
  1. REQUIP [Suspect]
     Indication: PARKINSON'S DISEASE
     Dates: start: 19990101, end: 20010101
  2. MIRAPEX [Suspect]
     Indication: PARKINSON'S DISEASE
     Dates: start: 20040101, end: 20070101

REACTIONS (6)
  - BINGE EATING [None]
  - HALLUCINATION [None]
  - MANIA [None]
  - OBSESSIVE-COMPULSIVE PERSONALITY DISORDER [None]
  - PSYCHOTIC DISORDER [None]
  - WEIGHT INCREASED [None]
